FAERS Safety Report 4995808-8 (Version None)
Quarter: 2006Q1

REPORT INFORMATION
  Report Type: 
  Country: None (occurrence: None)
  Receive Date: 20060315
  Receipt Date: 20051215
  Transmission Date: 20060701
  Serious: Yes (Other)
  Sender: FDA-Public Use
  Company Number: 428891

PATIENT
  Age: 76 Year
  Sex: Female
  Weight: 64.5 kg

DRUGS (8)
  1. BONIVA [Suspect]
     Indication: OSTEOPOROSIS
     Dosage: 150 MG 1 PER MONTH ORAL
     Route: 048
     Dates: start: 20051101
  2. FOSAMAX (ALENDRONIC ACID) 70 MG [Suspect]
     Indication: OSTEOPOROSIS
     Dosage: 70 MG 1 PER WEEK ORAL
     Route: 048
     Dates: end: 20051015
  3. PRILOSEC [Concomitant]
  4. CALTRATE (CALCIUM CARBONATE) [Concomitant]
  5. CHONDROITIN (CHONDROITIN SULFATE) [Concomitant]
  6. ASPIRIN [Concomitant]
  7. MVI (MULTIVITAMIN NOS) [Concomitant]
  8. VITAMIN NOS(VITAMIN NOS) [Concomitant]

REACTIONS (1)
  - UTERINE LEIOMYOMA [None]
